FAERS Safety Report 8244642-4 (Version None)
Quarter: 2012Q1

REPORT INFORMATION
  Report Type: 
  Country: None (occurrence: None)
  Receive Date: 20120329
  Receipt Date: 20111130
  Transmission Date: 20120608
  Serious: Yes (Hospitalization)
  Sender: FDA-Public Use
  Company Number: US-MYLANLABS-2011S1024678

PATIENT
  Sex: Female

DRUGS (4)
  1. OXYCODONE AND ACETAMINOPHEN [Suspect]
     Indication: INJURY
     Route: 048
     Dates: start: 20090101
  2. OXYCODONE AND ACETAMINOPHEN [Suspect]
     Indication: ROAD TRAFFIC ACCIDENT
     Route: 048
     Dates: start: 20090101
  3. FENTANYL-100 [Suspect]
     Indication: ROAD TRAFFIC ACCIDENT
     Dosage: Q72H
     Route: 062
     Dates: start: 20090101
  4. FENTANYL-100 [Suspect]
     Indication: INJURY
     Dosage: Q72H
     Route: 062
     Dates: start: 20090101

REACTIONS (4)
  - PARANOIA [None]
  - DEPRESSION [None]
  - HALLUCINATION [None]
  - THINKING ABNORMAL [None]
